FAERS Safety Report 10155296 (Version 2)
Quarter: 2014Q2

REPORT INFORMATION
  Report Type: Report from Study
  Country: US (occurrence: US)
  Receive Date: 20140506
  Receipt Date: 20140527
  Transmission Date: 20141212
  Serious: Yes (Other)
  Sender: FDA-Public Use
  Company Number: US-SA-2014SA050077

PATIENT
  Age: 35 Year
  Sex: Female

DRUGS (1)
  1. AUBAGIO [Suspect]
     Indication: MULTIPLE SCLEROSIS
     Route: 048
     Dates: start: 20140321

REACTIONS (17)
  - Clostridium difficile infection [Unknown]
  - Aortic stenosis [Unknown]
  - Nervousness [Unknown]
  - Anxiety [Unknown]
  - Insomnia [Unknown]
  - Atelectasis [Unknown]
  - Phlebolith [Unknown]
  - Burning sensation [Unknown]
  - Dysgeusia [Unknown]
  - Ill-defined disorder [Unknown]
  - Fatigue [Unknown]
  - Speech disorder [Unknown]
  - Feeling abnormal [Unknown]
  - Paraesthesia [Unknown]
  - Hypoaesthesia [Unknown]
  - Alopecia [Recovering/Resolving]
  - Drug dose omission [Unknown]
